FAERS Safety Report 4951580-9 (Version None)
Quarter: 2006Q1

REPORT INFORMATION
  Report Type: 
  Country: None (occurrence: None)
  Receive Date: 20060323
  Receipt Date: 20060224
  Transmission Date: 20060701
  Serious: Yes (Hospitalization)
  Sender: FDA-Public Use
  Company Number: GR-ABBOTT-06P-066-0326162-00

PATIENT
  Sex: Female
  Weight: 69 kg

DRUGS (15)
  1. HUMIRA [Suspect]
     Indication: RHEUMATOID ARTHRITIS
     Route: 058
     Dates: start: 20050204, end: 20060213
  2. HUMIRA [Suspect]
     Route: 058
     Dates: start: 20060318
  3. HUMIRA (COMMERCIAL) [Concomitant]
     Indication: RHEUMATOID ARTHRITIS
     Route: 058
     Dates: start: 20050204
  4. LOSARTAN POTASSIUM [Concomitant]
     Indication: HYPERTENSION
     Dates: start: 20021225, end: 20060213
  5. LOSARTAN POTASSIUM [Concomitant]
     Dates: start: 20060213
  6. BETAXOLOL [Concomitant]
     Indication: HYPERTENSION
     Dates: start: 20030801
  7. LEFLUNOMIDE [Concomitant]
     Indication: RHEUMATOID ARTHRITIS
     Dates: start: 20030125
  8. METFORMIN HYDROCHLORIDE [Concomitant]
     Indication: DIABETES MELLITUS
     Dates: start: 20031101, end: 20060213
  9. GLICLAZIDE [Concomitant]
     Indication: DIABETES MELLITUS
     Dates: start: 20060213
  10. KLOREF [Concomitant]
     Indication: MINERAL SUPPLEMENTATION
     Dates: start: 20060213
  11. HYOSCINE HBR HYT [Concomitant]
     Indication: DRUG USE FOR UNKNOWN INDICATION
     Dates: start: 20060213
  12. MAXUDIN [Concomitant]
     Indication: HYPERLIPIDAEMIA
     Dates: start: 19880101
  13. MAXUDIN [Concomitant]
     Indication: BLOOD CHOLESTEROL INCREASED
  14. PIRACETAM [Concomitant]
     Indication: VERTIGO
     Dates: start: 19960101, end: 20060213
  15. DEROCTYL [Concomitant]
     Indication: DIABETES MELLITUS
     Dates: start: 20040201, end: 20060213

REACTIONS (1)
  - FACIAL PALSY [None]
